FAERS Safety Report 7409057-7 (Version None)
Quarter: 2011Q2

REPORT INFORMATION
  Report Type: 
  Country: None (occurrence: None)
  Receive Date: 20110412
  Receipt Date: 20110401
  Transmission Date: 20111010
  Serious: No
  Sender: FDA-Public Use
  Company Number: DE-ACTELION-A-CH2009-25387

PATIENT
  Sex: Female

DRUGS (4)
  1. ANTIBIOTICS [Concomitant]
  2. CONTRACEPTIVES NOS [Concomitant]
  3. TRACLEER [Suspect]
     Indication: ACCIDENTAL EXPOSURE
     Route: 048
  4. METAMIZOLE [Concomitant]

REACTIONS (4)
  - PREGNANCY [None]
  - ACCIDENTAL EXPOSURE [None]
  - PRODUCT QUALITY ISSUE [None]
  - NORMAL NEWBORN [None]
